FAERS Safety Report 8764075 (Version 3)
Quarter: 2019Q3

REPORT INFORMATION
  Report Type: Report from Study
  Country: US (occurrence: US)
  Receive Date: 20120831
  Receipt Date: 20190722
  Transmission Date: 20191005
  Serious: Yes (Hospitalization)
  Sender: FDA-Public Use
  Company Number: US-UCBSA-059092

PATIENT
  Age: 38 Year
  Sex: Female
  Weight: 126 kg

DRUGS (6)
  1. LODINE [Concomitant]
     Active Substance: ETODOLAC
     Indication: PSORIATIC ARTHROPATHY
     Dosage: 500 MG, 2X/DAY (BID)
     Route: 048
     Dates: start: 20100830
  2. VITAMIN D [Concomitant]
     Active Substance: VITAMIN D NOS
     Indication: SUPPLEMENTATION THERAPY
     Dosage: 50000 IU, WEEKLY (QW)
     Route: 048
     Dates: start: 20101001
  3. CERTOLIZUMAB PEGOL VS PLACEBO [Suspect]
     Active Substance: CERTOLIZUMAB PEGOL
     Indication: PSORIATIC ARTHROPATHY
     Dosage: NO. OF DOSES : 27
     Route: 058
     Dates: start: 20101112
  4. METHOTREXATE. [Concomitant]
     Active Substance: METHOTREXATE
     Indication: PSORIATIC ARTHROPATHY
     Dosage: 20 MG, WEEKLY (QW)
     Route: 058
     Dates: start: 20100921
  5. MELATONIN [Concomitant]
     Active Substance: MELATONIN
     Indication: SLEEP DISORDER
     Dosage: 1 TABLET
     Route: 048
     Dates: start: 2008
  6. FOLIC ACID. [Concomitant]
     Active Substance: FOLIC ACID
     Indication: PROPHYLAXIS
     Dosage: 1 MG, ONCE DAILY (QD)
     Route: 048
     Dates: start: 20100824

REACTIONS (1)
  - Device related infection [Recovered/Resolved]

NARRATIVE: CASE EVENT DATE: 20120425
